FAERS Safety Report 7296097-4 (Version None)
Quarter: 2011Q1

REPORT INFORMATION
  Report Type: 
  Country: None (occurrence: None)
  Receive Date: 20110216
  Receipt Date: 20110208
  Transmission Date: 20110831
  Serious: Yes (Other)
  Sender: FDA-Public Use
  Company Number: US-AMGEN-USASP2010003040

PATIENT
  Age: 49 Year
  Sex: Male
  Weight: 68.03 kg

DRUGS (5)
  1. PEGASYS [Concomitant]
     Dosage: 180 A?G, UNK
     Dates: start: 20100310
  2. PROCRIT [Suspect]
     Indication: ANAEMIA
     Dosage: 40000 IU, QWK
     Route: 058
     Dates: start: 20100701
  3. PROCRIT [Suspect]
     Dosage: 20000 UNIT, UNK
  4. PROCRIT [Suspect]
     Dosage: 40000 IU, UNK
     Dates: start: 20100701
  5. RIBAVIRIN [Concomitant]
     Dosage: 200 MG, UNK
     Dates: start: 20100310

REACTIONS (7)
  - HAEMATURIA [None]
  - NEPHROLITHIASIS [None]
  - CALCULUS URETERIC [None]
  - RENAL PAIN [None]
  - LOSS OF CONSCIOUSNESS [None]
  - DYSURIA [None]
  - FLANK PAIN [None]
